FAERS Safety Report 6312023-6 (Version None)
Quarter: 2009Q3

REPORT INFORMATION
  Report Type: 
  Country: None (occurrence: None)
  Receive Date: 20090817
  Receipt Date: 20090810
  Transmission Date: 20100115
  Serious: Yes (Life-Threatening, Other)
  Sender: FDA-Public Use
  Company Number: US-CELGENEUS-163-20785-09070221

PATIENT
  Sex: Female

DRUGS (6)
  1. THALOMID [Suspect]
     Indication: MULTIPLE MYELOMA
     Route: 048
     Dates: start: 20081121, end: 20081206
  2. MELPHALAN HYDROCHLORIDE [Concomitant]
     Route: 065
     Dates: start: 20081121, end: 20081124
  3. PREDNISONE [Concomitant]
     Route: 065
     Dates: start: 20081121, end: 20081124
  4. ZOCOR [Concomitant]
     Route: 065
  5. PLENDIL [Concomitant]
     Indication: HYPERTENSION
     Route: 065
  6. BENICAR [Concomitant]
     Indication: HYPERTENSION
     Route: 065

REACTIONS (2)
  - PULMONARY INFARCTION [None]
  - PULMONARY THROMBOSIS [None]
